FAERS Safety Report 24806780 (Version 1)
Quarter: 2025Q1

REPORT INFORMATION
  Report Type: Spontaneous
  Country: NL (occurrence: NL)
  Receive Date: 20250104
  Receipt Date: 20250104
  Transmission Date: 20250409
  Serious: Yes (Life-Threatening, Hospitalization, Disabling, Other)
  Sender: AUROBINDO
  Company Number: NL-LRB-01023635

PATIENT
  Age: 24 Year
  Sex: Male
  Weight: 110 kg

DRUGS (2)
  1. RISPERIDONE [Suspect]
     Active Substance: RISPERIDONE
     Indication: Product used for unknown indication
     Dosage: 3 MILLIGRAM, ONCE A DAY (1 X PER DAY)
     Route: 048
     Dates: start: 20240910
  2. LORAZEPAM [Suspect]
     Active Substance: LORAZEPAM
     Indication: Anxiety
     Dosage: 2.5 MILLIGRAM, 3 TIMES A DAY (3 X PER DAY)
     Route: 048
     Dates: start: 20190610

REACTIONS (3)
  - Cognitive disorder [Recovered/Resolved]
  - Memory impairment [Recovered/Resolved]
  - Suicidal ideation [Recovered/Resolved]
